FAERS Safety Report 5498206-6 (Version None)
Quarter: 2007Q4

REPORT INFORMATION
  Report Type: 
  Country: None (occurrence: None)
  Receive Date: 20071025
  Receipt Date: 20070412
  Transmission Date: 20080405
  Serious: No
  Sender: FDA-Public Use
  Company Number: A0646988A

PATIENT
  Age: 87 Year
  Sex: Female

DRUGS (7)
  1. ADVAIR DISKUS 100/50 [Suspect]
     Indication: PNEUMONIA
     Route: 055
  2. FLONASE [Suspect]
     Indication: POSTNASAL DRIP
     Route: 045
  3. FELODIPINE [Concomitant]
  4. HYDROCHLOROTHIAZIDE [Concomitant]
  5. PREVACID [Concomitant]
  6. LIPITOR [Concomitant]
  7. OXYGEN THERAPY [Concomitant]

REACTIONS (4)
  - COUGH [None]
  - DRY MOUTH [None]
  - DRY THROAT [None]
  - PHARYNGOLARYNGEAL PAIN [None]
